FAERS Safety Report 6822491-9 (Version None)
Quarter: 2010Q3

REPORT INFORMATION
  Report Type: 
  Country: None (occurrence: None)
  Receive Date: 20100708
  Receipt Date: 20100628
  Transmission Date: 20110219
  Serious: Yes (Other)
  Sender: FDA-Public Use
  Company Number: US-BRISTOL-MYERS SQUIBB COMPANY-15170251

PATIENT
  Age: 45 Year
  Sex: Female

DRUGS (3)
  1. CYCLOPHOSPHAMIDE [Suspect]
     Indication: BREAST CANCER STAGE II
  2. ADRIAMYCIN PFS [Suspect]
     Indication: BREAST CANCER STAGE II
  3. RADIATION THERAPY [Suspect]
     Indication: BREAST CANCER STAGE II

REACTIONS (3)
  - ACUTE MONOCYTIC LEUKAEMIA [None]
  - CIRCULATORY COLLAPSE [None]
  - MULTI-ORGAN FAILURE [None]
